FAERS Safety Report 12315700 (Version 2)
Quarter: 2016Q3

REPORT INFORMATION
  Report Type: Spontaneous
  Country: FR (occurrence: FR)
  Receive Date: 20160428
  Receipt Date: 20160901
  Transmission Date: 20161109
  Serious: Yes (Hospitalization)
  Sender: FDA-Public Use
  Company Number: FR-MYLANLABS-2016M1017462

PATIENT

DRUGS (2)
  1. PLAVIX [Suspect]
     Active Substance: CLOPIDOGREL BISULFATE
     Indication: ACUTE CORONARY SYNDROME
     Dosage: 75 MG, QD
     Route: 048
     Dates: start: 201103, end: 20160326
  2. FONDAPARINUX [Suspect]
     Active Substance: FONDAPARINUX
     Indication: THROMBOPHLEBITIS
     Dosage: 2.5 MG, QD
     Route: 058
     Dates: start: 20160303, end: 20160320

REACTIONS (3)
  - Abdominal wall haematoma [Recovering/Resolving]
  - Off label use [Recovered/Resolved]
  - Anaemia [Recovered/Resolved]

NARRATIVE: CASE EVENT DATE: 20160303
